FAERS Safety Report 5931237-8 (Version None)
Quarter: 2008Q4

REPORT INFORMATION
  Report Type: 
  Country: None (occurrence: None)
  Receive Date: 20081027
  Receipt Date: 20081016
  Transmission Date: 20090506
  Serious: Yes (Hospitalization)
  Sender: FDA-Public Use
  Company Number: US-WYE-H06420208

PATIENT
  Age: 63 Year
  Sex: Female
  Weight: 47 kg

DRUGS (9)
  1. TEMSIROLIMUS [Suspect]
     Indication: MULTIPLE MYELOMA
     Route: 042
     Dates: start: 20080711, end: 20081010
  2. LOMOTIL [Concomitant]
     Dosage: UNKNOWN
     Route: 065
  3. NEURONTIN [Concomitant]
     Dosage: UNKNOWN
     Route: 065
  4. ZOFRAN [Concomitant]
     Dosage: UNKNOWN
     Route: 065
  5. SIMVASTATIN [Concomitant]
     Dosage: UNKNOWN
     Route: 065
  6. METOPROLOL SUCCINATE [Concomitant]
     Dosage: UNKNOWN
     Route: 065
  7. VALTREX [Concomitant]
     Dosage: UNKNOWN
     Route: 065
  8. VELCADE [Suspect]
     Indication: MULTIPLE MYELOMA
     Route: 042
     Dates: start: 20080711, end: 20081010
  9. PROTONIX [Concomitant]
     Dosage: UNKNOWN
     Route: 065

REACTIONS (3)
  - DEHYDRATION [None]
  - HYPOKALAEMIA [None]
  - PANCREATITIS [None]
